FAERS Safety Report 18967633 (Version 2)
Quarter: 2021Q2

REPORT INFORMATION
  Report Type: Spontaneous
  Country: US (occurrence: US)
  Receive Date: 20210304
  Receipt Date: 20210628
  Transmission Date: 20210717
  Serious: No
  Sender: FDA-Public Use
  Company Number: US-JNJFOC-20210232254

PATIENT
  Age: 52 Year
  Sex: Female
  Weight: 72.57 kg

DRUGS (4)
  1. COVID?19 VACCINE [Concomitant]
     Route: 065
     Dates: start: 20210111
  2. TYLENOL [Suspect]
     Active Substance: ACETAMINOPHEN
     Indication: ARTHRALGIA
     Route: 065
  3. ADVIL [Concomitant]
     Active Substance: IBUPROFEN
     Indication: ARTHRALGIA
     Route: 065
  4. COVID?19 VACCINE [Concomitant]
     Indication: PROPHYLAXIS
     Dosage: ONCE
     Route: 065
     Dates: start: 20201222

REACTIONS (2)
  - Drug ineffective [Unknown]
  - Abdominal discomfort [Unknown]
